FAERS Safety Report 6767808-9 (Version None)
Quarter: 2010Q2

REPORT INFORMATION
  Report Type: 
  Country: None (occurrence: None)
  Receive Date: 20100614
  Receipt Date: 20100609
  Transmission Date: 20101027
  Serious: Yes (Death, Other)
  Sender: FDA-Public Use
  Company Number: PHHY2010US37103

PATIENT
  Age: 56 Year
  Sex: Female

DRUGS (7)
  1. CYCLOSPORINE [Suspect]
     Indication: HEART AND LUNG TRANSPLANT
  2. PREDNISONE [Suspect]
     Indication: HEART AND LUNG TRANSPLANT
  3. AZATHIOPRINE [Suspect]
     Indication: HEART AND LUNG TRANSPLANT
  4. SIROLIMUS [Concomitant]
  5. MYCOPHENOLATE MOFETIL [Concomitant]
     Dosage: UNK
  6. VORICONAZOLE [Concomitant]
     Dosage: 200 MG, BID
     Route: 048
     Dates: start: 20040101
  7. VORICONAZOLE [Concomitant]
     Dosage: 300 MG, BID
     Dates: start: 20080101

REACTIONS (13)
  - ACTINIC KERATOSIS [None]
  - ASPERGILLOSIS [None]
  - JOINT DISLOCATION REDUCTION [None]
  - LENTIGO [None]
  - LUNG NEOPLASM [None]
  - LYMPHADENOPATHY [None]
  - MICROGRAPHIC SKIN SURGERY [None]
  - PHOTODERMATOSIS [None]
  - SKIN CANCER [None]
  - SKIN NEOPLASM EXCISION [None]
  - SQUAMOUS CELL CARCINOMA [None]
  - SUBCUTANEOUS NODULE [None]
  - TRAUMATIC FRACTURE [None]
